FAERS Safety Report 5205424-0 (Version None)
Quarter: 2007Q1

REPORT INFORMATION
  Report Type: 
  Country: None (occurrence: None)
  Receive Date: 20070108
  Receipt Date: 20070102
  Transmission Date: 20070707
  Serious: Yes (Death)
  Sender: FDA-Public Use
  Company Number: S06-USA-01839-01

PATIENT
  Age: 77 Year
  Sex: Female
  Weight: 75.1157 kg

DRUGS (6)
  1. NAMENDA [Suspect]
     Dates: end: 20051025
  2. OLANZAPINE [Concomitant]
  3. ATROPINE [Concomitant]
  4. CITALOPRAM HYDROBROMIDE [Concomitant]
  5. DONEPEZIL HCL [Concomitant]
  6. VALPROIC ACID [Concomitant]

REACTIONS (21)
  - ACCIDENT [None]
  - ADHESION [None]
  - AORTIC ARTERIOSCLEROSIS [None]
  - AORTIC VALVE DISEASE [None]
  - ARTERIOSCLEROSIS [None]
  - ARTERIOSCLEROSIS CORONARY ARTERY [None]
  - ASPIRATION [None]
  - CEREBRAL ARTERIOSCLEROSIS [None]
  - CONTUSION [None]
  - DRUG TOXICITY [None]
  - GOITRE [None]
  - LOSS OF CONSCIOUSNESS [None]
  - MITRAL VALVE DISEASE [None]
  - NEPHROSCLEROSIS [None]
  - OBESITY [None]
  - PERICARDIAL DISEASE [None]
  - PERITONEAL ADHESIONS [None]
  - PLEURAL ADHESION [None]
  - RESUSCITATION [None]
  - SPINAL OSTEOARTHRITIS [None]
  - TRICUSPID VALVE DISEASE [None]
